FAERS Safety Report 6883018-9 (Version None)
Quarter: 2010Q3

REPORT INFORMATION
  Report Type: 
  Country: None (occurrence: None)
  Receive Date: 20100727
  Receipt Date: 20100719
  Transmission Date: 20110219
  Serious: Yes (Death)
  Sender: FDA-Public Use
  Company Number: 20108942

PATIENT
  Age: 72 Year
  Sex: Female

DRUGS (1)
  1. BACLOFEN [Suspect]
     Indication: MUSCLE SPASTICITY
     Dosage: 70 MCG, DAILY, INTRATHECAL
     Route: 039

REACTIONS (9)
  - BLOOD PRESSURE DECREASED [None]
  - CYANOSIS [None]
  - DISEASE RECURRENCE [None]
  - DYSPNOEA [None]
  - LABILE BLOOD PRESSURE [None]
  - OXYGEN SATURATION DECREASED [None]
  - RESPIRATION ABNORMAL [None]
  - RESPIRATORY ARREST [None]
  - RUPTURED CEREBRAL ANEURYSM [None]
